FAERS Safety Report 17836787 (Version 1)
Quarter: 2020Q2

REPORT INFORMATION
  Report Type: Spontaneous
  Country: DE (occurrence: DE)
  Receive Date: 20200528
  Receipt Date: 20200528
  Transmission Date: 20200714
  Serious: Yes (Other)
  Sender: FDA-Public Use
  Company Number: DE-JNJFOC-20200527506

PATIENT
  Age: 47 Year
  Sex: Male
  Weight: 106 kg

DRUGS (3)
  1. STELARA [Suspect]
     Active Substance: USTEKINUMAB
     Indication: COLITIS ULCERATIVE
     Route: 058
  2. SALOFALK                           /00747601/ [Concomitant]
     Active Substance: MESALAMINE
     Indication: COLITIS ULCERATIVE
     Dosage: SALOFALK GRANU-STIX, 3 G GASTRIC JUICE 3 MG PER DAY
     Route: 065
     Dates: start: 20161011
  3. STELARA [Suspect]
     Active Substance: USTEKINUMAB
     Indication: CROHN^S DISEASE

REACTIONS (6)
  - Rash [Not Recovered/Not Resolved]
  - Off label use [Unknown]
  - Nasal inflammation [Not Recovered/Not Resolved]
  - Product use issue [Unknown]
  - Epistaxis [Recovering/Resolving]
  - Haematochezia [Not Recovered/Not Resolved]

NARRATIVE: CASE EVENT DATE: 20200118
